FAERS Safety Report 8213069-3 (Version None)
Quarter: 2012Q1

REPORT INFORMATION
  Report Type: 
  Country: None (occurrence: None)
  Receive Date: 20120315
  Receipt Date: 20120306
  Transmission Date: 20120608
  Serious: Yes (Hospitalization)
  Sender: FDA-Public Use
  Company Number: US-BAYER-2011-047162

PATIENT
  Age: 34 Year
  Sex: Female
  Weight: 63 kg

DRUGS (8)
  1. YASMIN [Suspect]
     Indication: CONTRACEPTION
     Dosage: UNK
     Route: 048
     Dates: start: 20050101, end: 20090201
  2. XANAX [Concomitant]
  3. PROPRANOLOL [Concomitant]
  4. MECLIZINE [Concomitant]
  5. CIPROFLOXACIN HYDROCHLORIDE [Concomitant]
  6. YASMIN [Suspect]
     Indication: ACNE
  7. NORTRIPTYLINE HCL [Concomitant]
     Indication: PAIN MANAGEMENT
     Dosage: UNK
     Dates: start: 20040101
  8. NORCO [Concomitant]
     Indication: PAIN MANAGEMENT
     Dosage: UNK
     Dates: start: 20040101

REACTIONS (9)
  - THROMBOSIS [None]
  - COLITIS ISCHAEMIC [None]
  - EMOTIONAL DISTRESS [None]
  - ANHEDONIA [None]
  - FEAR [None]
  - PAIN [None]
  - PSYCHOLOGICAL TRAUMA [None]
  - ANXIETY [None]
  - INJURY [None]
